FAERS Safety Report 24254837 (Version 1)
Quarter: 2024Q3

REPORT INFORMATION
  Report Type: Spontaneous
  Country: US (occurrence: None)
  Receive Date: 20240826
  Receipt Date: 20240826
  Transmission Date: 20241017
  Serious: No
  Sender: Public
  Company Number: None

PATIENT
  Age: 74 Year
  Sex: Female
  Weight: 68.85 kg

DRUGS (16)
  1. MOUNJARO [Suspect]
     Active Substance: TIRZEPATIDE
     Indication: Diabetes mellitus
     Dosage: 1 INJECTION ONCE A WEEK SUBCUTANEOUS
     Route: 058
  2. MOUNJARO [Suspect]
     Active Substance: TIRZEPATIDE
     Indication: Blood cholesterol increased
  3. MOUNJARO [Suspect]
     Active Substance: TIRZEPATIDE
     Indication: Weight control
  4. LOSARTAN [Concomitant]
     Active Substance: LOSARTAN\LOSARTAN POTASSIUM
  5. LEVOTHYROXINE [Concomitant]
     Active Substance: LEVOTHYROXINE\LEVOTHYROXINE SODIUM
  6. ASPIRIN [Concomitant]
     Active Substance: ASPIRIN
  7. plaquinil [Concomitant]
  8. XYZAL [Concomitant]
     Active Substance: LEVOCETIRIZINE DIHYDROCHLORIDE
  9. iprotropium [Concomitant]
  10. estrogen topical [Concomitant]
  11. triampterene [Concomitant]
  12. involkana [Concomitant]
  13. FOLIC ACID [Concomitant]
     Active Substance: FOLIC ACID
  14. VITAMINS [Concomitant]
     Active Substance: VITAMINS
  15. collagen supplement [Concomitant]
  16. lactinex granules [Concomitant]

REACTIONS (5)
  - Eating disorder [None]
  - Dyspepsia [None]
  - Nausea [None]
  - Lethargy [None]
  - Diverticulum [None]

NARRATIVE: CASE EVENT DATE: 20240601
